FAERS Safety Report 14264221 (Version 2)
Quarter: 2017Q4

REPORT INFORMATION
  Report Type: Spontaneous
  Country: US (occurrence: US)
  Receive Date: 20171208
  Receipt Date: 20171215
  Transmission Date: 20180321
  Serious: Yes (Hospitalization)
  Sender: FDA-Public Use
  Company Number: US-NOVOPROD-540355

PATIENT
  Age: 20 Year
  Sex: Female
  Weight: 68.27 kg

DRUGS (2)
  1. LEVEMIR [Suspect]
     Active Substance: INSULIN DETEMIR
     Indication: TYPE 1 DIABETES MELLITUS
     Dosage: 15 U, BID
     Route: 058
     Dates: start: 201402
  2. NOVOLIN N [Suspect]
     Active Substance: INSULIN HUMAN
     Indication: TYPE 1 DIABETES MELLITUS
     Route: 058

REACTIONS (2)
  - Diabetic ketosis [Recovered/Resolved]
  - Ovarian cyst [Unknown]

NARRATIVE: CASE EVENT DATE: 201606
